FAERS Safety Report 15489308 (Version 2)
Quarter: 2018Q4

REPORT INFORMATION
  Report Type: Spontaneous
  Country: SA (occurrence: SA)
  Receive Date: 20181011
  Receipt Date: 20181129
  Transmission Date: 20190205
  Serious: Yes (Hospitalization, Other)
  Sender: FDA-Public Use
  Company Number: SA-TOLMAR, INC.-TOLG20180564

PATIENT
  Age: 11 Year
  Sex: Male
  Weight: 28 kg

DRUGS (3)
  1. BETAMETHASONE DIPROPIONATE. [Suspect]
     Active Substance: BETAMETHASONE DIPROPIONATE
     Indication: PUSTULAR PSORIASIS
     Dosage: APPLIED OVER AFFECTED AREAS INCLUDING FACE, ARMS, TRUNK, AND LOWER LIMBS, ONLY DURING EXACERBATIONS
     Route: 061
  2. CALCIPOTRIOL [Concomitant]
     Active Substance: CALCIPOTRIENE
     Indication: PUSTULAR PSORIASIS
     Dosage: UNKNOWN
     Route: 061
  3. BETAMETHASONE DIPROPIONATE. [Suspect]
     Active Substance: BETAMETHASONE DIPROPIONATE
     Dosage: APPLIED OVER AFFECTED AREAS INCLUDING FACE, ARMS, TRUNK, AND LOWER LIMBS, ONLY DURING EXACERBATIONS
     Route: 061

REACTIONS (5)
  - Osteoporotic fracture [Recovered/Resolved]
  - Bone pain [Recovered/Resolved]
  - Quality of life decreased [Recovered/Resolved]
  - Wrist fracture [Recovered/Resolved]
  - Product use issue [None]
